FAERS Safety Report 11942978 (Version 1)
Quarter: 2016Q1

REPORT INFORMATION
  Report Type: Spontaneous
  Country: US (occurrence: US)
  Receive Date: 20160125
  Receipt Date: 20160125
  Transmission Date: 20160526
  Serious: Yes (Other)
  Sender: FDA-Public Use
  Company Number: US-UNITED THERAPEUTICS-UNT-2015-009175

PATIENT
  Sex: Female
  Weight: 62.59 kg

DRUGS (4)
  1. ADCIRCA [Concomitant]
     Active Substance: TADALAFIL
     Indication: PRODUCT USED FOR UNKNOWN INDICATION
  2. LETAIRIS [Concomitant]
     Active Substance: AMBRISENTAN
     Indication: PRODUCT USED FOR UNKNOWN INDICATION
  3. REMODULIN [Suspect]
     Active Substance: TREPROSTINIL
     Indication: PULMONARY ARTERIAL HYPERTENSION
     Dosage: 0.00625 ?G/KG, CONTINUING
     Route: 041
     Dates: start: 20150624
  4. REMODULIN [Suspect]
     Active Substance: TREPROSTINIL
     Indication: PULMONARY HYPERTENSION

REACTIONS (5)
  - Dermatitis contact [Not Recovered/Not Resolved]
  - Catheter site extravasation [Unknown]
  - Injection site discharge [Recovered/Resolved]
  - Catheter site infection [Unknown]
  - Rash [Unknown]

NARRATIVE: CASE EVENT DATE: 2015
